FAERS Safety Report 6131687-3 (Version None)
Quarter: 2009Q1

REPORT INFORMATION
  Report Type: 
  Country: None (occurrence: None)
  Receive Date: 20090325
  Receipt Date: 20090319
  Transmission Date: 20090719
  Serious: Yes (Disabling, Other)
  Sender: FDA-Public Use
  Company Number: FR-WYE-G03358909

PATIENT
  Sex: Male

DRUGS (13)
  1. TAZOCILLINE [Suspect]
     Indication: PYREXIA
     Route: 042
     Dates: start: 20090106, end: 20090115
  2. CALCIUM FOLINATE [Suspect]
     Route: 042
     Dates: start: 20090102, end: 20090112
  3. CALCIUM FOLINATE [Suspect]
     Route: 042
     Dates: start: 20090113, end: 20090113
  4. CALCIUM FOLINATE [Suspect]
     Route: 042
     Dates: start: 20090114, end: 20090116
  5. TRIFLUCAN [Concomitant]
     Route: 042
     Dates: start: 20090107, end: 20090113
  6. KALETRA [Concomitant]
     Route: 048
  7. NEXIUM [Concomitant]
     Route: 048
  8. MALOCIDE [Concomitant]
     Route: 048
     Dates: end: 20090119
  9. TRAMADOL HCL [Suspect]
     Indication: PAIN
     Route: 042
     Dates: start: 20090108, end: 20090113
  10. PLAVIX [Concomitant]
     Route: 048
  11. KARDEGIC [Concomitant]
     Route: 048
  12. CIFLOX [Suspect]
     Indication: PYREXIA
     Route: 048
     Dates: start: 20090109, end: 20090115
  13. KIVEXA [Concomitant]
     Route: 048
     Dates: end: 20090119

REACTIONS (2)
  - CONVULSION [None]
  - ELECTROENCEPHALOGRAM ABNORMAL [None]
